FAERS Safety Report 17199314 (Version 1)
Quarter: 2019Q4

REPORT INFORMATION
  Report Type: Report from Study
  Country: DE (occurrence: DE)
  Receive Date: 20191225
  Receipt Date: 20191225
  Transmission Date: 20200122
  Serious: Yes (Other)
  Sender: FDA-Public Use
  Company Number: DE-AMGEN-DEUNI2019213125

PATIENT
  Age: 53 Year
  Sex: Female
  Weight: 41 kg

DRUGS (20)
  1. PANITUMUMAB [Suspect]
     Active Substance: PANITUMUMAB
     Indication: COLORECTAL CANCER METASTATIC
     Dosage: 230 MILLIGRAM
     Route: 042
     Dates: start: 20181219
  2. FOLINIC ACID [Suspect]
     Active Substance: LEUCOVORIN
     Dosage: 400 MILLIGRAM
     Route: 065
     Dates: start: 20190619
  3. FLUOROURACIL. [Suspect]
     Active Substance: FLUOROURACIL
     Dosage: 2380 MILLIGRAM
     Route: 065
     Dates: start: 20190703
  4. IRINOTECAN [Suspect]
     Active Substance: IRINOTECAN
     Dosage: 170 MILLIGRAM
     Route: 065
     Dates: start: 20190731
  5. PANITUMUMAB [Suspect]
     Active Substance: PANITUMUMAB
     Dosage: 215 MILLIGRAM
     Route: 042
     Dates: start: 20190219
  6. IRINOTECAN [Suspect]
     Active Substance: IRINOTECAN
     Dosage: 180 MILLIGRAM
     Route: 065
     Dates: start: 20190522
  7. FOLINIC ACID [Suspect]
     Active Substance: LEUCOVORIN
     Dosage: 390 MILLIGRAM
     Route: 065
     Dates: start: 20190717
  8. FLUOROURACIL. [Suspect]
     Active Substance: FLUOROURACIL
     Dosage: 2440 MILLIGRAM
     Route: 065
     Dates: start: 20190522
  9. IRINOTECAN [Suspect]
     Active Substance: IRINOTECAN
     Indication: COLORECTAL CANCER METASTATIC
     Dosage: 240 MILLIGRAM
     Route: 065
     Dates: start: 20181219
  10. FOLINIC ACID [Suspect]
     Active Substance: LEUCOVORIN
     Dosage: 530 MILLIGRAM
     Route: 065
     Dates: start: 20190219
  11. FLUOROURACIL. [Suspect]
     Active Substance: FLUOROURACIL
     Indication: COLORECTAL CANCER METASTATIC
     Dosage: 3250 MILLIGRAM
     Route: 065
     Dates: start: 20181219
  12. FLUOROURACIL. [Suspect]
     Active Substance: FLUOROURACIL
     Dosage: 2320 MILLIGRAM
     Route: 065
     Dates: start: 20190731
  13. PANITUMUMAB [Suspect]
     Active Substance: PANITUMUMAB
     Dosage: 220 MILLIGRAM
     Route: 042
     Dates: start: 20190107
  14. PANITUMUMAB [Suspect]
     Active Substance: PANITUMUMAB
     Dosage: 210 MILLIGRAM
     Route: 042
     Dates: start: 20190717
  15. FOLINIC ACID [Suspect]
     Active Substance: LEUCOVORIN
     Indication: COLORECTAL CANCER METASTATIC
     Dosage: 540 MILLIGRAM
     Route: 065
     Dates: start: 20181219
  16. FOLINIC ACID [Suspect]
     Active Substance: LEUCOVORIN
     Dosage: 410 MILLIGRAM
     Route: 065
     Dates: start: 20190522
  17. PANITUMUMAB [Suspect]
     Active Substance: PANITUMUMAB
     Dosage: 230 MILLIGRAM
     Route: 042
     Dates: start: 20190522
  18. PANITUMUMAB [Suspect]
     Active Substance: PANITUMUMAB
     Dosage: 220 MILLIGRAM
     Route: 042
     Dates: start: 20190619
  19. FLUOROURACIL. [Suspect]
     Active Substance: FLUOROURACIL
     Dosage: 3210 MILLIGRAM
     Route: 065
     Dates: start: 20190107
  20. FLUOROURACIL. [Suspect]
     Active Substance: FLUOROURACIL
     Dosage: 3180 MILLIGRAM
     Route: 065
     Dates: start: 20190219

REACTIONS (1)
  - Acute polyneuropathy [Unknown]

NARRATIVE: CASE EVENT DATE: 20190725
